FAERS Safety Report 7100137-2 (Version None)
Quarter: 2010Q4

REPORT INFORMATION
  Report Type: 
  Country: None (occurrence: None)
  Receive Date: 20101112
  Receipt Date: 20100423
  Transmission Date: 20110411
  Serious: No
  Sender: FDA-Public Use
  Company Number: A0856488A

PATIENT
  Age: 87 Year
  Sex: Female

DRUGS (8)
  1. CARVEDILOL [Suspect]
     Indication: HYPERTENSION
     Dosage: 12.5MG TWICE PER DAY
     Route: 048
     Dates: start: 20100201
  2. SERTRALINE HYDROCHLORIDE [Concomitant]
  3. AMLODIPINE [Concomitant]
  4. PLAVIX [Concomitant]
  5. LASIX [Concomitant]
  6. SYNTHROID [Concomitant]
  7. ZOCOR [Concomitant]
  8. ASPIRIN [Concomitant]

REACTIONS (2)
  - BLOOD POTASSIUM INCREASED [None]
  - DRUG INEFFECTIVE [None]
